FAERS Safety Report 24532412 (Version 1)
Quarter: 2024Q4

REPORT INFORMATION
  Report Type: Spontaneous
  Country: TW (occurrence: TW)
  Receive Date: 20241022
  Receipt Date: 20241022
  Transmission Date: 20250115
  Serious: Yes (Other)
  Sender: TAKEDA
  Company Number: TW-TAKEDA-2024TUS104319

PATIENT
  Age: 62 Year
  Sex: Female

DRUGS (6)
  1. BORTEZOMIB [Suspect]
     Active Substance: BORTEZOMIB
     Indication: Pleural effusion
     Dosage: 1.3 MILLIGRAM/SQ. METER
     Route: 058
  2. BORTEZOMIB [Suspect]
     Active Substance: BORTEZOMIB
     Dosage: 0.975 MILLIGRAM/SQ. METER
     Route: 034
  3. BORTEZOMIB [Suspect]
     Active Substance: BORTEZOMIB
     Dosage: 0.65 MILLIGRAM/SQ. METER
     Route: 058
  4. BORTEZOMIB [Suspect]
     Active Substance: BORTEZOMIB
     Dosage: 0.65 MILLIGRAM/SQ. METER
     Route: 034
  5. DEXAMETHASONE [Suspect]
     Active Substance: DEXAMETHASONE
     Indication: Pleural effusion
     Dosage: UNK
     Route: 065
  6. THALIDOMIDE [Suspect]
     Active Substance: THALIDOMIDE
     Indication: Pleural effusion
     Dosage: UNK
     Route: 065

REACTIONS (4)
  - Thrombocytopenia [Recovered/Resolved]
  - Toxicity to various agents [Recovered/Resolved]
  - Rash maculo-papular [Recovered/Resolved]
  - Diarrhoea [Recovered/Resolved]
